FAERS Safety Report 7641128-2 (Version None)
Quarter: 2011Q3

REPORT INFORMATION
  Report Type: 
  Country: None (occurrence: None)
  Receive Date: 20110728
  Receipt Date: 20110715
  Transmission Date: 20111222
  Serious: Yes (Hospitalization, Other)
  Sender: FDA-Public Use
  Company Number: HU-ELI_LILLY_AND_COMPANY-HU201105007378

PATIENT
  Age: 41 Year
  Sex: Male

DRUGS (4)
  1. OLANZAPINE [Suspect]
     Dosage: UNK, MONTHLY (1/M)
     Route: 030
  2. CLONAZEPAM [Concomitant]
     Dosage: UNK, QD
     Route: 065
  3. OLANZAPINE [Suspect]
     Indication: SCHIZOPHRENIA
     Dosage: 405 MG, MONTHLY (1/M)
     Route: 030
     Dates: start: 20101101
  4. OLANZAPINE [Suspect]
     Dosage: 300 MG, MONTHLY (1/M)
     Route: 030
     Dates: start: 20110401

REACTIONS (12)
  - HAEMOGLOBIN DECREASED [None]
  - POLYURIA [None]
  - ASPARTATE AMINOTRANSFERASE INCREASED [None]
  - PSYCHOMOTOR SKILLS IMPAIRED [None]
  - HICCUPS [None]
  - BLOOD SODIUM DECREASED [None]
  - ALANINE AMINOTRANSFERASE INCREASED [None]
  - URINE SODIUM INCREASED [None]
  - BLOOD CREATINE PHOSPHOKINASE INCREASED [None]
  - HAEMATOCRIT DECREASED [None]
  - RED BLOOD CELL COUNT DECREASED [None]
  - HYPOAESTHESIA [None]
